FAERS Safety Report 14017784 (Version 1)
Quarter: 2017Q3

REPORT INFORMATION
  Report Type: Spontaneous
  Country: US (occurrence: None)
  Receive Date: 20170927
  Receipt Date: 20170927
  Transmission Date: 20171128
  Serious: Yes (Life-Threatening, Disabling)
  Sender: FDA-Public Use
  Company Number: None

PATIENT
  Age: 63 Year
  Sex: Male
  Weight: 91.63 kg

DRUGS (2)
  1. MORPHINE ER 60MG+ 100MG ER [Suspect]
     Active Substance: MORPHINE
  2. MORPHINE IR 30MG + 15MG [Suspect]
     Active Substance: MORPHINE SULFATE
     Indication: BACK INJURY
     Dosage: 3 PILLS 5 - TIMES, 3 - TIMES, 3 - TIMES
     Dates: start: 1991

REACTIONS (3)
  - Hyperaesthesia [None]
  - Cerebellar ataxia [None]
  - Amnesia [None]

NARRATIVE: CASE EVENT DATE: 20160520
